FAERS Safety Report 17620428 (Version 1)
Quarter: 2020Q2

REPORT INFORMATION
  Report Type: Spontaneous
  Country: US (occurrence: US)
  Receive Date: 20200403
  Receipt Date: 20200403
  Transmission Date: 20200713
  Serious: Yes (Hospitalization, Other)
  Sender: FDA-Public Use
  Company Number: US-APOTEX-2020AP009305

PATIENT
  Age: 78 Year
  Sex: Female

DRUGS (1)
  1. ENOXAPARIN [Suspect]
     Active Substance: ENOXAPARIN
     Indication: ANTICOAGULANT THERAPY
     Dosage: UNK
     Route: 058

REACTIONS (5)
  - Wrong technique in product usage process [Unknown]
  - Blood loss anaemia [Recovering/Resolving]
  - Pelvic haematoma [Recovering/Resolving]
  - Abdominal wall haematoma [Recovering/Resolving]
  - Haemorrhage [Recovering/Resolving]
